FAERS Safety Report 14560806 (Version 1)
Quarter: 2018Q1

REPORT INFORMATION
  Report Type: Spontaneous
  Country: CA (occurrence: CA)
  Receive Date: 20180222
  Receipt Date: 20180222
  Transmission Date: 20180509
  Serious: Yes (Hospitalization, Other)
  Sender: FDA-Public Use
  Company Number: CA-BAXTER-2018BAX005541

PATIENT

DRUGS (1)
  1. DIANEAL W/ DEXTROSE 2.5% [Suspect]
     Active Substance: CALCIUM CHLORIDE\DEXTROSE\MAGNESIUM CHLORIDE\SODIUM CHLORIDE\SODIUM LACTATE
     Indication: PERITONEAL DIALYSIS
     Route: 033

REACTIONS (8)
  - Pneumonia [Recovered/Resolved]
  - Pain [Unknown]
  - Fluid retention [Unknown]
  - Pulmonary oedema [Unknown]
  - Respiratory disorder [Unknown]
  - Ascites [Unknown]
  - General physical health deterioration [Unknown]
  - Abdominal pain upper [Not Recovered/Not Resolved]
